FAERS Safety Report 4973179-0 (Version None)
Quarter: 2006Q2

REPORT INFORMATION
  Report Type: 
  Country: None (occurrence: None)
  Receive Date: 20060414
  Receipt Date: 20060313
  Transmission Date: 20061013
  Serious: Yes (Hospitalization, Other)
  Sender: FDA-Public Use
  Company Number: US-MERCK-0603USA02285

PATIENT
  Age: 56 Year
  Sex: Male
  Weight: 125 kg

DRUGS (5)
  1. VIOXX [Suspect]
     Indication: ARTHRALGIA
     Route: 048
     Dates: start: 20020101, end: 20040401
  2. MORPHINE [Concomitant]
     Route: 065
  3. NEURONTIN [Concomitant]
     Route: 065
  4. AMBIEN [Concomitant]
     Route: 065
  5. FLOMAX [Concomitant]
     Route: 065

REACTIONS (12)
  - CARDIAC FAILURE [None]
  - CARPAL TUNNEL DECOMPRESSION [None]
  - CARPAL TUNNEL SYNDROME [None]
  - CHEST PAIN [None]
  - CHRONIC OBSTRUCTIVE PULMONARY DISEASE [None]
  - DIABETES MELLITUS NON-INSULIN-DEPENDENT [None]
  - DYSPNOEA EXERTIONAL [None]
  - HYPERLIPIDAEMIA [None]
  - INTERVERTEBRAL DISC DEGENERATION [None]
  - MYOCARDIAL INFARCTION [None]
  - NEPHROLITHIASIS [None]
  - OEDEMA PERIPHERAL [None]
